FAERS Safety Report 11512216 (Version 1)
Quarter: 2015Q3

REPORT INFORMATION
  Report Type: Spontaneous
  Country: PL (occurrence: PL)
  Receive Date: 20150916
  Receipt Date: 20150916
  Transmission Date: 20151125
  Serious: Yes (Other)
  Sender: FDA-Public Use
  Company Number: PL-TEVA-592290ACC

PATIENT
  Sex: Female
  Weight: 88 kg

DRUGS (1)
  1. CICLOSPORIN [Suspect]
     Active Substance: CYCLOSPORINE
     Indication: PSORIASIS
     Dosage: 4 MG/KG DAILY;
     Route: 048
     Dates: start: 20130213, end: 20130918

REACTIONS (1)
  - Gingival hyperplasia [Recovered/Resolved]
